FAERS Safety Report 18791732 (Version 2)
Quarter: 2021Q1

REPORT INFORMATION
  Report Type: Spontaneous
  Country: US (occurrence: US)
  Receive Date: 20210127
  Receipt Date: 20210127
  Transmission Date: 20210419
  Serious: Yes (Death)
  Sender: FDA-Public Use
  Company Number: US-ROCHE-2755870

PATIENT
  Age: 45 Year
  Sex: Male

DRUGS (1)
  1. ERIVEDGE [Suspect]
     Active Substance: VISMODEGIB
     Indication: BASAL CELL CARCINOMA METASTATIC
     Route: 048
     Dates: start: 20190815, end: 20210114

REACTIONS (1)
  - Gastrointestinal haemorrhage [Fatal]
